FAERS Safety Report 8607815 (Version 3)
Quarter: 2014Q1

REPORT INFORMATION
  Report Type: Spontaneous
  Country: US (occurrence: US)
  Receive Date: 20120611
  Receipt Date: 20140128
  Transmission Date: 20141002
  Serious: Yes (Hospitalization, Disabling)
  Sender: FDA-Public Use
  Company Number: US-ASTRAZENECA-2012SE35155

PATIENT
  Age: 533 Month
  Sex: Male
  Weight: 113.4 kg

DRUGS (18)
  1. NEXIUM [Suspect]
     Indication: GASTROOESOPHAGEAL REFLUX DISEASE
     Route: 048
  2. NEXIUM [Suspect]
     Indication: HIATUS HERNIA
     Route: 048
  3. NEXIUM [Suspect]
     Indication: GASTROOESOPHAGEAL REFLUX DISEASE
     Route: 048
     Dates: start: 20070809
  4. NEXIUM [Suspect]
     Indication: HIATUS HERNIA
     Route: 048
     Dates: start: 20070809
  5. ZANTAC [Concomitant]
     Dates: start: 200011
  6. PREVACID [Concomitant]
     Dates: start: 200505
  7. VALTREX [Concomitant]
     Indication: HERPES ZOSTER
  8. VALTREX [Concomitant]
     Indication: HERPES ZOSTER
     Dates: start: 20070810
  9. AVELOX [Concomitant]
     Dates: start: 20071126
  10. HYDROCODONE-APAP [Concomitant]
     Dosage: 7.5-500
     Dates: start: 20071219
  11. LEVAQUIN [Concomitant]
     Dates: start: 20070809
  12. CELEBREX [Concomitant]
     Dates: start: 20100712
  13. METHOCARBAM [Concomitant]
     Dates: start: 20100916
  14. INDOMETHACIN [Concomitant]
     Dates: start: 20110718
  15. ZYRTEC [Concomitant]
     Dates: start: 20070809
  16. LORAZEPAM [Concomitant]
     Dates: start: 20120202
  17. ABILIFY [Concomitant]
  18. MONTELUKAST [Concomitant]

REACTIONS (17)
  - Back disorder [Unknown]
  - Joint injury [Unknown]
  - Arthropathy [Unknown]
  - Sinus disorder [Unknown]
  - Osteoporosis [Unknown]
  - Lumbar vertebral fracture [Unknown]
  - Arthritis [Unknown]
  - Bone disorder [Unknown]
  - Multiple fractures [Unknown]
  - Intervertebral disc degeneration [Unknown]
  - Fall [Unknown]
  - Osteoarthritis [Unknown]
  - Foot fracture [Unknown]
  - Radiculopathy [Unknown]
  - Dacryostenosis acquired [Unknown]
  - Spondylolysis [Unknown]
  - Depression [Unknown]
